FAERS Safety Report 6506233-2 (Version None)
Quarter: 2009Q4

REPORT INFORMATION
  Report Type: 
  Country: None (occurrence: None)
  Receive Date: 20091218
  Receipt Date: 20091209
  Transmission Date: 20100525
  Serious: Yes (Hospitalization, Other)
  Sender: FDA-Public Use
  Company Number: PHHO2009FR15282

PATIENT

DRUGS (1)
  1. AFINITOR [Suspect]
     Indication: RENAL CANCER METASTATIC
     Dosage: 10 MG /DAY
     Route: 048
     Dates: start: 20091029, end: 20091123

REACTIONS (14)
  - ACUTE RESPIRATORY DISTRESS SYNDROME [None]
  - BACK PAIN [None]
  - BRONCHIECTASIS [None]
  - BRONCHOPULMONARY ASPERGILLOSIS [None]
  - CANDIDIASIS [None]
  - CYTOMEGALOVIRUS INFECTION [None]
  - DECREASED APPETITE [None]
  - DEHYDRATION [None]
  - GAIT DISTURBANCE [None]
  - GENERAL PHYSICAL HEALTH DETERIORATION [None]
  - INTERSTITIAL LUNG DISEASE [None]
  - MUCOSAL INFLAMMATION [None]
  - OXYGEN SATURATION DECREASED [None]
  - WEIGHT DECREASED [None]
